FAERS Safety Report 8778940 (Version 2)
Quarter: 2012Q4

REPORT INFORMATION
  Report Type: 
  Country: JP (occurrence: JP)
  Receive Date: 20120912
  Receipt Date: 20121018
  Transmission Date: 20130627
  Serious: Yes (Hospitalization, Other)
  Sender: FDA-Public Use
  Company Number: PHHY2012JP077863

PATIENT
  Age: 85 Year
  Sex: Male

DRUGS (2)
  1. RIVASTIGMIN [Suspect]
     Indication: DEMENTIA ALZHEIMER^S TYPE
     Dosage: 4.5 mg, once a day
     Route: 062
     Dates: start: 201207
  2. RIVASTIGMIN [Suspect]
     Dosage: 9 mg, once a day
     Route: 062

REACTIONS (4)
  - Suicide attempt [Recovered/Resolved]
  - Fracture [Recovered/Resolved]
  - Suicidal ideation [Recovered/Resolved]
  - Abnormal behaviour [Unknown]
